FAERS Safety Report 7302324-7 (Version None)
Quarter: 2011Q1

REPORT INFORMATION
  Report Type: 
  Country: None (occurrence: None)
  Receive Date: 20110218
  Receipt Date: 20110207
  Transmission Date: 20110831
  Serious: Yes (Other)
  Sender: FDA-Public Use
  Company Number: JP-PFIZER INC-2011034590

PATIENT
  Age: 66 Year
  Sex: Male
  Weight: 58 kg

DRUGS (5)
  1. FLUOROURACIL [Concomitant]
     Dosage: 3850 MG (2376.5 MG/M2, D1-2), UNK
     Route: 041
     Dates: start: 20101105, end: 20101221
  2. CAMPTOSAR [Suspect]
     Indication: COLORECTAL CANCER
     Dosage: 240 MG (148.1 MG/M2), UNK
     Route: 041
     Dates: start: 20101105, end: 20101221
  3. FLUOROURACIL [Concomitant]
     Indication: COLORECTAL CANCER
     Dosage: 600 MG (370.4 MG/M2), UNK
     Route: 040
     Dates: start: 20101105, end: 20101221
  4. AVASTIN [Concomitant]
     Indication: COLORECTAL CANCER
     Dosage: 280 MG, UNK
     Route: 041
     Dates: start: 20101105, end: 20101221
  5. CALCIUM LEVOFOLINATE [Concomitant]
     Indication: COLORECTAL CANCER
     Dosage: 300 MG (185.2 MG/M2), UNK
     Route: 041
     Dates: start: 20101105, end: 20101221

REACTIONS (1)
  - PNEUMONIA [None]
